FAERS Safety Report 5096886-0 (Version None)
Quarter: 2006Q3

REPORT INFORMATION
  Report Type: 
  Country: None (occurrence: None)
  Receive Date: 20060901
  Receipt Date: 20060901
  Transmission Date: 20061208
  Serious: No
  Sender: FDA-Public Use
  Company Number: None

PATIENT
  Sex: Female

DRUGS (1)
  1. INDOMETHACIN 50MG CAP [Suspect]
     Indication: ARTHRITIS
     Dosage: 50MG  BID  PO
     Route: 048
     Dates: start: 20040811, end: 20060830

REACTIONS (2)
  - CONFUSIONAL STATE [None]
  - DISORIENTATION [None]
